FAERS Safety Report 6870224-2 (Version None)
Quarter: 2010Q3

REPORT INFORMATION
  Report Type: 
  Country: None (occurrence: None)
  Receive Date: 20100723
  Receipt Date: 20100716
  Transmission Date: 20110219
  Serious: Yes (Hospitalization)
  Sender: FDA-Public Use
  Company Number: US-BIOGENIDEC-2010BI024077

PATIENT
  Age: 55 Year
  Sex: Female
  Weight: 113 kg

DRUGS (1)
  1. AVONEX [Suspect]
     Indication: MULTIPLE SCLEROSIS
     Route: 030
     Dates: start: 20100208, end: 20100312

REACTIONS (4)
  - DECREASED APPETITE [None]
  - HYDROCEPHALUS [None]
  - HYPOTENSION [None]
  - INFLUENZA LIKE ILLNESS [None]
